FAERS Safety Report 16895799 (Version 2)
Quarter: 2019Q4

REPORT INFORMATION
  Report Type: Spontaneous
  Country: DE (occurrence: DE)
  Receive Date: 20191008
  Receipt Date: 20191105
  Transmission Date: 20200122
  Serious: Yes (Disabling, Other)
  Sender: FDA-Public Use
  Company Number: DE-MYLANLABS-2019M1092976

PATIENT
  Sex: Male
  Weight: 80 kg

DRUGS (4)
  1. AMLODIPIN                          /00972401/ [Concomitant]
     Active Substance: AMLODIPINE BESYLATE
     Dosage: 5 MILLIGRAM, BID
  2. VALSARTAN DURA 160 MG FILMTABLETTEN [Suspect]
     Active Substance: VALSARTAN
     Indication: PRODUCT USED FOR UNKNOWN INDICATION
     Dosage: 160 MILLIGRAM, BID
     Dates: start: 2016, end: 2018
  3. SERTRALINE [Concomitant]
     Active Substance: SERTRALINE HYDROCHLORIDE
     Dosage: 50 MILLIGRAM, QD
  4. PIPAMPERONE [Concomitant]
     Active Substance: PIPAMPERONE
     Dosage: 40 MILLIGRAM, QD

REACTIONS (3)
  - Impaired quality of life [Not Recovered/Not Resolved]
  - Mental impairment [Not Recovered/Not Resolved]
  - Recalled product administered [Unknown]

NARRATIVE: CASE EVENT DATE: 2018
